FAERS Safety Report 13323422 (Version 1)
Quarter: 2017Q1

REPORT INFORMATION
  Report Type: Spontaneous
  Country: US (occurrence: US)
  Receive Date: 20170310
  Receipt Date: 20170310
  Transmission Date: 20170428
  Serious: Yes (Other)
  Sender: FDA-Public Use
  Company Number: US-PFIZER INC-2017098698

PATIENT
  Age: 28 Year
  Sex: Female
  Weight: 75 kg

DRUGS (6)
  1. FENTANYL CITRATE. [Suspect]
     Active Substance: FENTANYL CITRATE
     Indication: EPIDURAL ANAESTHESIA
     Dosage: 100 UG, UNK (EPIDURAL BOLUS OF 0.25% BUPIVACAINE, IN TWO, 4 ML INJECTIONS AND 100 MCG FENTANYL)
     Route: 008
  2. FENTANYL CITRATE. [Suspect]
     Active Substance: FENTANYL CITRATE
     Dosage: 2 UG/ML, UNK (EPIDURAL INFUSION OF A 0.0625% BUPIVACAINE AND 2 MCG/ML FENTANYL AT 14 ML/HR)
     Route: 008
  3. EPINEPHRINE. [Concomitant]
     Active Substance: EPINEPHRINE
     Dosage: UNK (1.5% LIDOCAINE WITH 1:200,000 EPINEPHRINE, 3ML)
     Route: 008
  4. LIDOCAINE. [Concomitant]
     Active Substance: LIDOCAINE
     Dosage: UNK (1.5% LIDOCAINE WITH 1:200,000 EPINEPHRINE, 3ML)
     Route: 008
  5. BUPIVACAINE HCL [Suspect]
     Active Substance: BUPIVACAINE HYDROCHLORIDE
     Indication: EPIDURAL ANAESTHESIA
     Dosage: UNK  (EPIDURAL BOLUS OF 0.25% BUPIVACAINE, IN TWO, 4 ML INJECTIONS AND 100 MCG FENTANYL)
     Route: 008
  6. BUPIVACAINE HCL [Suspect]
     Active Substance: BUPIVACAINE HYDROCHLORIDE
     Dosage: UNK (EPIDURAL INFUSION CONSISTING OF A 0.0625% BUPIVACAINE AND 2 MCG/ML FENTANYL AT 14 ML/HR)
     Route: 008

REACTIONS (1)
  - Horner^s syndrome [Unknown]
